FAERS Safety Report 11523981 (Version 3)
Quarter: 2017Q2

REPORT INFORMATION
  Report Type: Spontaneous
  Country: NL (occurrence: NL)
  Receive Date: 20150918
  Receipt Date: 20170424
  Transmission Date: 20170829
  Serious: Yes (Hospitalization, Other)
  Sender: FDA-Public Use
  Company Number: NL-TEVA-592946ISR

PATIENT
  Age: 72 Year
  Sex: Female

DRUGS (11)
  1. METFORMINE [Concomitant]
     Active Substance: METFORMIN HYDROCHLORIDE
  2. ACETYLSALICYLZUUR [Concomitant]
     Active Substance: ASPIRIN
  3. DIVISUN [Concomitant]
  4. AMLODIPINE [Concomitant]
     Active Substance: AMLODIPINE BESYLATE
  5. ENALAPRILMALEAAT [Concomitant]
  6. CRESTOR [Concomitant]
     Active Substance: ROSUVASTATIN CALCIUM
  7. ESCITALOPRAM 10 MG TEVA, FILMOMHULDE TABLETTEN [Suspect]
     Active Substance: ESCITALOPRAM OXALATE
     Dosage: 10 MILLIGRAM DAILY;
     Route: 048
     Dates: start: 20150813, end: 20150901
  8. OMPERAZOL [Concomitant]
  9. METOPROLOLTARTRAAT [Concomitant]
  10. LOSARTAN. [Concomitant]
     Active Substance: LOSARTAN
  11. NOVOMIX [Concomitant]
     Active Substance: INSULIN ASPART
     Dosage: 2 DOSAGE FORMS DAILY; IN THE MORNING AND AT NIGHT

REACTIONS (12)
  - Dizziness [Recovered/Resolved]
  - Tremor [Recovered/Resolved]
  - Dysphagia [Recovered/Resolved]
  - Apathy [Recovered/Resolved]
  - Somnolence [Recovered/Resolved]
  - Parathyroid disorder [Recovered/Resolved]
  - Hypercalcaemia [Unknown]
  - Dysstasia [Recovered/Resolved]
  - Hyperparathyroidism primary [Unknown]
  - Malaise [Recovered/Resolved]
  - Confusional state [Recovered/Resolved]
  - Daydreaming [Recovered/Resolved]

NARRATIVE: CASE EVENT DATE: 201508
